FAERS Safety Report 6332415-9 (Version None)
Quarter: 2009Q3

REPORT INFORMATION
  Report Type: 
  Country: None (occurrence: None)
  Receive Date: 20090828
  Receipt Date: 20090819
  Transmission Date: 20100115
  Serious: Yes (Hospitalization)
  Sender: FDA-Public Use
  Company Number: JP-AVENTIS-200912371JP

PATIENT
  Sex: Male

DRUGS (5)
  1. CLEXANE [Suspect]
     Dosage: DOSE: 2 V
     Route: 058
     Dates: start: 20090817, end: 20090819
  2. CLEXANE [Suspect]
     Indication: THROMBOSIS PROPHYLAXIS
     Dosage: DOSE: 2 V
     Route: 058
     Dates: start: 20090817, end: 20090819
  3. MICARDIS [Concomitant]
     Dosage: DOSE: 1 TABLET
     Dates: start: 20070101
  4. FERRUM [Concomitant]
     Dosage: DOSE: 1 CAPSULE
     Dates: start: 20090813
  5. FLOMOX [Concomitant]
     Dosage: DOSE: 3 TABLETS
     Dates: start: 20090815, end: 20090819

REACTIONS (2)
  - HEPATIC FUNCTION ABNORMAL [None]
  - LIVER INJURY [None]
